FAERS Safety Report 9905778 (Version 2)
Quarter: 2014Q1

REPORT INFORMATION
  Report Type: Spontaneous
  Country: US (occurrence: US)
  Receive Date: 20140218
  Receipt Date: 20140218
  Transmission Date: 20141002
  Serious: No
  Sender: FDA-Public Use
  Company Number: US-GILEAD-2012-0053493

PATIENT
  Age: 53 Year
  Sex: Female

DRUGS (2)
  1. LETAIRIS [Suspect]
     Indication: PRODUCT USED FOR UNKNOWN INDICATION
     Dosage: 5 MG, UNK
     Route: 048
     Dates: start: 20091119
  2. OXYGEN [Concomitant]

REACTIONS (6)
  - Dizziness [Unknown]
  - Loss of consciousness [Unknown]
  - Face injury [Unknown]
  - Eye injury [Unknown]
  - Fall [Unknown]
  - Skin disorder [Unknown]
